FAERS Safety Report 4870934-2 (Version None)
Quarter: 2005Q4

REPORT INFORMATION
  Report Type: 
  Country: None (occurrence: None)
  Receive Date: 20051228
  Receipt Date: 20051215
  Transmission Date: 20060501
  Serious: Yes (Hospitalization, Other)
  Sender: FDA-Public Use
  Company Number: 200515036BCC

PATIENT
  Age: 34 Year
  Sex: Male
  Weight: 77.1115 kg

DRUGS (4)
  1. ALEVE [Suspect]
     Indication: MUSCLE TIGHTNESS
     Dosage: SEE IMAGE
     Route: 048
     Dates: start: 20050101
  2. ALEVE [Suspect]
     Indication: MYALGIA
     Dosage: SEE IMAGE
     Route: 048
     Dates: start: 20050101
  3. ALEVE [Suspect]
     Indication: MUSCLE TIGHTNESS
     Dosage: SEE IMAGE
     Route: 048
     Dates: start: 20051211
  4. ALEVE [Suspect]
     Indication: MYALGIA
     Dosage: SEE IMAGE
     Route: 048
     Dates: start: 20051211

REACTIONS (3)
  - CONVULSION [None]
  - PYREXIA [None]
  - SENSATION OF HEAVINESS [None]
